FAERS Safety Report 6754969-0 (Version None)
Quarter: 2010Q2

REPORT INFORMATION
  Report Type: 
  Country: None (occurrence: None)
  Receive Date: 20100602
  Receipt Date: 20100517
  Transmission Date: 20101027
  Serious: Yes (Hospitalization)
  Sender: FDA-Public Use
  Company Number: 2010-00539

PATIENT
  Age: 2 Month
  Sex: Male

DRUGS (3)
  1. CEFTRIAXONE [Suspect]
     Indication: DRUG USE FOR UNKNOWN INDICATION
     Dates: start: 20100101
  2. AMOXICILLIN [Suspect]
     Indication: DRUG USE FOR UNKNOWN INDICATION
     Dates: start: 20100101
  3. PREVENAR 13. (PNEUMOCOCCAL POLYSACCHARIDE (CRM197) CONJUGATE) [Suspect]
     Indication: IMMUNISATION
     Dates: start: 20100416, end: 20100416

REACTIONS (4)
  - COLITIS [None]
  - DIARRHOEA [None]
  - HAEMATOCHEZIA [None]
  - MUCOUS STOOLS [None]
